FAERS Safety Report 20006863 (Version 1)
Quarter: 2021Q4

REPORT INFORMATION
  Report Type: Spontaneous
  Country: US (occurrence: US)
  Receive Date: 20211028
  Receipt Date: 20211028
  Transmission Date: 20220303
  Serious: No
  Sender: FDA-Public Use
  Company Number: US-PFIZER INC-2015352180

PATIENT
  Age: 64 Year
  Sex: Male
  Weight: 73.48 kg

DRUGS (1)
  1. ATORVASTATIN CALCIUM [Suspect]
     Active Substance: ATORVASTATIN CALCIUM
     Indication: Blood cholesterol
     Dosage: 20 MG

REACTIONS (3)
  - Blood cholesterol increased [Unknown]
  - Drug ineffective [Unknown]
  - Lipids abnormal [Unknown]
